FAERS Safety Report 6094272-8 (Version None)
Quarter: 2009Q1

REPORT INFORMATION
  Report Type: 
  Country: None (occurrence: None)
  Receive Date: 20090225
  Receipt Date: 20090225
  Transmission Date: 20090719
  Serious: No
  Sender: FDA-Public Use
  Company Number: None

PATIENT
  Age: 61 Year
  Sex: Female
  Weight: 81.6475 kg

DRUGS (1)
  1. CLONAZEPAM [Suspect]
     Indication: MUSCLE TIGHTNESS
     Dosage: .5 MG TAKE IF NEEDED PO
     Route: 048
     Dates: start: 20090206, end: 20090212

REACTIONS (2)
  - DRUG EFFECT DECREASED [None]
  - THERAPEUTIC RESPONSE UNEXPECTED WITH DRUG SUBSTITUTION [None]
